FAERS Safety Report 16912995 (Version 1)
Quarter: 2019Q4

REPORT INFORMATION
  Report Type: Spontaneous
  Country: US (occurrence: US)
  Receive Date: 20191014
  Receipt Date: 20191014
  Transmission Date: 20200122
  Serious: Yes (Other)
  Sender: FDA-Public Use
  Company Number: US-HETERO-HET2019US01434

PATIENT
  Age: 65 Year
  Sex: Female

DRUGS (4)
  1. LITHIUM. [Suspect]
     Active Substance: LITHIUM
     Indication: BIPOLAR DISORDER
     Dosage: 900 MG, QD AT NIGHT
     Route: 065
     Dates: end: 201303
  2. VALPROIC ACID. [Suspect]
     Active Substance: VALPROIC ACID
     Indication: BIPOLAR DISORDER
     Dosage: UNK
     Route: 065
  3. LITHIUM. [Suspect]
     Active Substance: LITHIUM
     Dosage: TAPERED DOSE
     Route: 065
     Dates: start: 201303
  4. DEPAKOTE [Suspect]
     Active Substance: DIVALPROEX SODIUM
     Indication: BIPOLAR DISORDER
     Dosage: UNK
     Route: 065

REACTIONS (6)
  - Hypercalcaemia [Recovered/Resolved]
  - Nephrogenic diabetes insipidus [Unknown]
  - Goitre [Unknown]
  - Chronic kidney disease [Not Recovered/Not Resolved]
  - Renal tubular injury [Not Recovered/Not Resolved]
  - Hyperparathyroidism [Recovered/Resolved]
